FAERS Safety Report 7808108-5 (Version None)
Quarter: 2011Q4

REPORT INFORMATION
  Report Type: 
  Country: None (occurrence: None)
  Receive Date: 20111011
  Receipt Date: 20110921
  Transmission Date: 20120403
  Serious: Yes (Hospitalization)
  Sender: FDA-Public Use
  Company Number: LU-B.I. PHARMACEUTICALS,INC./RIDGEFIELD-2011-BL-00107BL

PATIENT
  Sex: Female
  Weight: 82 kg

DRUGS (10)
  1. NEXIUM [Concomitant]
  2. BIOCONDIL [Concomitant]
  3. PRADAXA [Suspect]
     Indication: THROMBOSIS PROPHYLAXIS
     Dosage: 150 MG
     Route: 048
     Dates: start: 20110322, end: 20110401
  4. XANAX [Concomitant]
  5. ALL OTHER THERAPEUTIC PRODUCTS [Concomitant]
  6. VOLTAREN [Concomitant]
  7. TRAZODONE HCL [Concomitant]
  8. BISOPROLOL FUMARATE [Concomitant]
  9. ATACAND [Concomitant]
  10. ACETAMINOPHEN [Concomitant]

REACTIONS (5)
  - NECROSIS [None]
  - VASCULAR OCCLUSION [None]
  - NECROBIOSIS [None]
  - HAEMATOMA [None]
  - HAEMORRHAGIC INFARCTION [None]
